FAERS Safety Report 14259479 (Version 1)
Quarter: 2017Q4

REPORT INFORMATION
  Report Type: Spontaneous
  Country: CA (occurrence: CA)
  Receive Date: 20171207
  Receipt Date: 20171207
  Transmission Date: 20180321
  Serious: Yes (Other)
  Sender: FDA-Public Use
  Company Number: CA-APOTEX-2017AP009586

PATIENT
  Age: 63 Year
  Sex: Female

DRUGS (3)
  1. APO-AMOXI [Suspect]
     Active Substance: AMOXICILLIN
     Indication: HELICOBACTER INFECTION
     Dosage: UNK
     Route: 065
  2. ESOMEPRAZOLE [Concomitant]
     Active Substance: ESOMEPRAZOLE
     Indication: HELICOBACTER INFECTION
     Route: 065
  3. APO-MOXIFLOXACIN [Suspect]
     Active Substance: MOXIFLOXACIN HYDROCHLORIDE
     Indication: HELICOBACTER INFECTION
     Dosage: UNK
     Route: 065

REACTIONS (11)
  - Nightmare [Unknown]
  - Psychotic disorder [Unknown]
  - Hallucination, auditory [Unknown]
  - Anxiety [Unknown]
  - Depression [Unknown]
  - Hallucination [Unknown]
  - Suicidal ideation [Unknown]
  - Stress [Unknown]
  - Fear [Unknown]
  - Anhedonia [Unknown]
  - Depressed mood [Unknown]
